FAERS Safety Report 4338504-2 (Version None)
Quarter: 2004Q2

REPORT INFORMATION
  Report Type: 
  Country: None (occurrence: None)
  Receive Date: 20040414
  Receipt Date: 20040402
  Transmission Date: 20050107
  Serious: Yes (Hospitalization)
  Sender: FDA-Public Use
  Company Number: FR-GLAXOSMITHKLINE-B0328958A

PATIENT
  Age: 51 Year
  Sex: Male
  Weight: 89 kg

DRUGS (10)
  1. ZOPHREN [Suspect]
     Route: 042
     Dates: start: 20031229, end: 20040106
  2. NEULASTA [Suspect]
     Dosage: 6MG PER DAY
     Route: 058
     Dates: start: 20040106, end: 20040106
  3. LARGACTIL [Suspect]
     Dosage: 12MG PER DAY
     Route: 042
     Dates: start: 20031231, end: 20031231
  4. CISPLATIN [Suspect]
     Dosage: 70MG PER DAY
     Route: 042
     Dates: start: 20031229, end: 20040101
  5. ETOPOSIDE [Suspect]
     Dosage: 250MG PER DAY
     Route: 042
     Dates: start: 20031229, end: 20040101
  6. BLEOMYCIN [Suspect]
     Dosage: 30MG PER DAY
     Route: 042
     Dates: start: 20031229, end: 20040101
  7. PRIMPERAN INJ [Suspect]
     Route: 065
     Dates: start: 20031229, end: 20040106
  8. SOLU-MEDROL [Suspect]
     Route: 065
     Dates: start: 20031229, end: 20040106
  9. POLARAMINE [Suspect]
     Route: 065
     Dates: start: 20031230, end: 20040105
  10. LOXEN [Suspect]
     Route: 048
     Dates: start: 20040101, end: 20040101

REACTIONS (13)
  - ARTERIAL THROMBOSIS [None]
  - CREATININE RENAL CLEARANCE DECREASED [None]
  - DEHYDRATION [None]
  - LEG AMPUTATION [None]
  - NEUTROPHIL COUNT DECREASED [None]
  - PANCYTOPENIA [None]
  - PERIPHERAL ISCHAEMIA [None]
  - RENAL FAILURE [None]
  - RHABDOMYOLYSIS [None]
  - SEPSIS [None]
  - THROMBOCYTOPENIA [None]
  - VOMITING [None]
  - WHITE BLOOD CELL COUNT DECREASED [None]
